FAERS Safety Report 7861424-3 (Version None)
Quarter: 2011Q4

REPORT INFORMATION
  Report Type: 
  Country: None (occurrence: None)
  Receive Date: 20111027
  Receipt Date: 20111025
  Transmission Date: 20120403
  Serious: Yes (Other)
  Sender: FDA-Public Use
  Company Number: GB-PFIZER INC-2011259181

PATIENT
  Age: 26 Year
  Sex: Male

DRUGS (1)
  1. LYRICA [Suspect]
     Dosage: 100 MG, 2X/DAY

REACTIONS (3)
  - LUNG NEOPLASM MALIGNANT [None]
  - METASTASES TO BONE [None]
  - SEXUAL DYSFUNCTION [None]
